FAERS Safety Report 6965298-4 (Version None)
Quarter: 2010Q3

REPORT INFORMATION
  Report Type: 
  Country: None (occurrence: None)
  Receive Date: 20100903
  Receipt Date: 20100827
  Transmission Date: 20110219
  Serious: Yes (Hospitalization)
  Sender: FDA-Public Use
  Company Number: US-MYLANLABS-2010S1015701

PATIENT
  Age: 40 Year
  Sex: Female
  Weight: 68.04 kg

DRUGS (1)
  1. OMEPRAZOLE [Suspect]
     Indication: GASTROOESOPHAGEAL REFLUX DISEASE
     Route: 048
     Dates: start: 20100731, end: 20100827

REACTIONS (5)
  - BLOOD POTASSIUM DECREASED [None]
  - MUSCLE SPASMS [None]
  - OEDEMA PERIPHERAL [None]
  - PALPITATIONS [None]
  - PARAESTHESIA [None]
